FAERS Safety Report 16449445 (Version 3)
Quarter: 2019Q4

REPORT INFORMATION
  Report Type: Spontaneous
  Country: CO (occurrence: CO)
  Receive Date: 20190619
  Receipt Date: 20191126
  Transmission Date: 20200122
  Serious: Yes (Death, Hospitalization)
  Sender: FDA-Public Use
  Company Number: CO-AMGEN-COLSP2015034948

PATIENT
  Age: 57 Year
  Sex: Female

DRUGS (5)
  1. ENBREL [Suspect]
     Active Substance: ETANERCEPT
     Indication: RHEUMATOID ARTHRITIS
     Dosage: 50 MG, WEEKLY
     Route: 058
     Dates: start: 20120317, end: 2018
  2. DULOXETINE. [Concomitant]
     Active Substance: DULOXETINE
     Dosage: UNK, 1X/DAY
     Route: 065
  3. ENBREL [Suspect]
     Active Substance: ETANERCEPT
     Dosage: 50 MILLIGRAM
     Route: 058
     Dates: end: 2019
  4. PREGABALIN. [Concomitant]
     Active Substance: PREGABALIN
     Dosage: UNK, 3X/DAY
  5. ACETAMINOPHEN. [Concomitant]
     Active Substance: ACETAMINOPHEN
     Indication: PAIN MANAGEMENT
     Dosage: UNK UNK, AS NECESSARY ACCORDING TO THE PAIN
     Route: 065

REACTIONS (7)
  - Blood potassium decreased [Unknown]
  - Anaemia [Unknown]
  - Death [Fatal]
  - Infection [Unknown]
  - Herpes virus infection [Recovered/Resolved]
  - Wrong technique in product usage process [Unknown]
  - Abscess limb [Unknown]

NARRATIVE: CASE EVENT DATE: 201806
